FAERS Safety Report 22216403 (Version 1)
Quarter: 2023Q2

REPORT INFORMATION
  Report Type: Spontaneous
  Country: US (occurrence: None)
  Receive Date: 20230417
  Receipt Date: 20230417
  Transmission Date: 20230722
  Serious: No
  Sender: FDA-Public Use
  Company Number: 2023A069139

PATIENT

DRUGS (2)
  1. FASLODEX [Suspect]
     Active Substance: FULVESTRANT
     Route: 030
  2. IBRANCE [Suspect]
     Active Substance: PALBOCICLIB
     Indication: Breast cancer metastatic
     Dosage: TABLET BY MOUTH ONCE DAILY FOR 21 DAYS ON, 7 DAYS OFF IN CONJUNCTION WITH FASLODEX/FULVESTRANT INJEC
     Route: 048

REACTIONS (2)
  - Blood test abnormal [Unknown]
  - Drug tolerance [Unknown]
